FAERS Safety Report 16577168 (Version 1)
Quarter: 2019Q3

REPORT INFORMATION
  Report Type: Report from Study
  Country: DK (occurrence: DK)
  Receive Date: 20190716
  Receipt Date: 20190716
  Transmission Date: 20191004
  Serious: Yes (Other)
  Sender: FDA-Public Use
  Company Number: DK-AUROBINDO-AUR-APL-2019-035872

PATIENT

DRUGS (1)
  1. SIMVASTATIN TABLET [Suspect]
     Active Substance: SIMVASTATIN
     Indication: PRODUCT USED FOR UNKNOWN INDICATION
     Dosage: MINIMUM 40 MG DAILY FOR MORE THAN 3 MONTHS
     Route: 048

REACTIONS (2)
  - Myalgia [Unknown]
  - Mitochondrial cytopathy [Unknown]
